FAERS Safety Report 24941168 (Version 1)
Quarter: 2025Q1

REPORT INFORMATION
  Report Type: Spontaneous
  Country: DK (occurrence: DK)
  Receive Date: 20250207
  Receipt Date: 20250207
  Transmission Date: 20250409
  Serious: Yes (Other)
  Sender: NOVARTIS
  Company Number: DK-002147023-NVSC2025DK017681

PATIENT
  Age: 23 Year
  Sex: Female

DRUGS (2)
  1. GILENYA [Suspect]
     Active Substance: FINGOLIMOD HYDROCHLORIDE
     Indication: Product used for unknown indication
     Route: 065
  2. KESIMPTA [Suspect]
     Active Substance: OFATUMUMAB
     Indication: Product used for unknown indication
     Route: 065

REACTIONS (5)
  - Blindness [Recovering/Resolving]
  - Rebound effect [Recovering/Resolving]
  - Speech disorder [Recovering/Resolving]
  - Sensory loss [Recovering/Resolving]
  - Gait disturbance [Recovering/Resolving]
